FAERS Safety Report 12894991 (Version 1)
Quarter: 2016Q4

REPORT INFORMATION
  Report Type: Report from Study
  Country: JP (occurrence: JP)
  Receive Date: 20161029
  Receipt Date: 20161029
  Transmission Date: 20170207
  Serious: Yes (Hospitalization)
  Sender: FDA-Public Use
  Company Number: JP-TAKEDA-2015TJP016524

PATIENT
  Age: 57 Year
  Sex: Female
  Weight: 39.4 kg

DRUGS (18)
  1. LEVOCABASTINE HYDROCHLORIDE [Concomitant]
     Active Substance: LEVOCABASTINE HYDROCHLORIDE
     Indication: CONJUNCTIVITIS BACTERIAL
     Dosage: UNK, QID
     Route: 047
     Dates: start: 20150622, end: 20150630
  2. ACETAMINOPHEN. [Concomitant]
     Active Substance: ACETAMINOPHEN
     Dosage: 300 MG, UNK
     Route: 048
     Dates: start: 20150709
  3. NEXIUM [Concomitant]
     Active Substance: ESOMEPRAZOLE MAGNESIUM
     Indication: GASTROOESOPHAGEAL REFLUX DISEASE
     Dosage: 20 MG, QD
     Route: 048
     Dates: start: 20150315
  4. IXAZOMIB [Suspect]
     Active Substance: IXAZOMIB
     Indication: PLASMA CELL MYELOMA
     Dosage: UNK, 1/WEEK
     Route: 048
     Dates: start: 20150702, end: 20150820
  5. HUSCODE [Concomitant]
     Active Substance: CHLORPHENIRAMINE MALEAT\DIHYDROCODEINE PHOSPHATE\METHYLEPHEDRINE HYDROCHLORIDE, DL-
     Indication: COUGH
     Dosage: 3 DF, TID
     Route: 048
     Dates: start: 20150826, end: 20150910
  6. AMOXICILLIN TRIHYDRATE [Concomitant]
     Active Substance: AMOXICILLIN
     Indication: BRONCHITIS
     Dosage: 1 DF, TID
     Route: 048
     Dates: start: 20150826, end: 20150828
  7. ACICLOVIR [Concomitant]
     Active Substance: ACYCLOVIR
     Indication: PROPHYLAXIS
     Dosage: 400 MG, QD
     Route: 048
     Dates: start: 20150403
  8. BIOFERMIN                          /01617201/ [Concomitant]
     Active Substance: BACILLUS SUBTILIS\LACTOBACILLUS ACIDOPHILUS\STREPTOCOCCUS FAECAIS
     Indication: PROPHYLAXIS AGAINST DIARRHOEA
     Dosage: 1 G, UNK
     Route: 048
     Dates: start: 20150714
  9. IXAZOMIB [Suspect]
     Active Substance: IXAZOMIB
     Dosage: UNK, 1/WEEK
     Route: 048
     Dates: start: 20150917
  10. PROCATEROL HYDROCHLORIDE [Concomitant]
     Active Substance: PROCATEROL HYDROCHLORIDE
     Indication: BRONCHITIS CHRONIC
     Dosage: 20 ?G, UNK
     Route: 055
     Dates: start: 20150618
  11. ADOAIR [Concomitant]
     Active Substance: FLUTICASONE PROPIONATE\SALMETEROL XINAFOATE
     Indication: BRONCHITIS CHRONIC
     Dosage: 100 ?G, BID
     Route: 050
     Dates: start: 20150622
  12. CROTAMITON [Concomitant]
     Active Substance: CROTAMITON
     Dosage: UNK
     Route: 003
     Dates: start: 20150723
  13. PRANOPROFEN [Concomitant]
     Active Substance: PRANOPROFEN
     Indication: CONJUNCTIVITIS BACTERIAL
     Dosage: 1 DF, UNK
     Route: 047
     Dates: start: 20150804, end: 20150811
  14. METHYCOBAL [Concomitant]
     Active Substance: METHYLCOBALAMIN
     Indication: PROPHYLAXIS
     Dosage: 500 ?G, TID
     Route: 048
     Dates: start: 20150409
  15. ZOLEDRONIC ACID [Concomitant]
     Active Substance: ZOLEDRONIC ACID
     Indication: PLASMA CELL MYELOMA
     Dosage: 4 MG, UNK
     Route: 042
     Dates: start: 20140318
  16. LOXOPROFEN SODIUM [Concomitant]
     Active Substance: LOXOPROFEN SODIUM
     Indication: PLASMA CELL MYELOMA
     Dosage: 1 DF, UNK
     Route: 003
     Dates: start: 20150723
  17. METOCLOPRAMIDE. [Concomitant]
     Active Substance: METOCLOPRAMIDE
     Indication: PROPHYLAXIS OF NAUSEA AND VOMITING
     Dosage: 5 MG, UNK
     Route: 048
     Dates: start: 20150702
  18. CARBOCISTEINE [Concomitant]
     Active Substance: CARBOCYSTEINE
     Indication: PRODUCTIVE COUGH
     Dosage: 500 MG, TID
     Route: 048
     Dates: start: 20150826, end: 20150910

REACTIONS (1)
  - Pleurisy [Recovered/Resolved]

NARRATIVE: CASE EVENT DATE: 20150826
